FAERS Safety Report 7290910-2 (Version None)
Quarter: 2011Q1

REPORT INFORMATION
  Report Type: 
  Country: None (occurrence: None)
  Receive Date: 20110214
  Receipt Date: 20110209
  Transmission Date: 20110831
  Serious: Yes (Death, Other)
  Sender: FDA-Public Use
  Company Number: US-SANOFI-AVENTIS-2011SA008641

PATIENT

DRUGS (6)
  1. 5-FU [Suspect]
     Route: 041
  2. BEVACIZUMAB [Suspect]
     Route: 042
  3. LEUCOVORIN CALCIUM [Suspect]
     Route: 042
  4. CETUXIMAB [Suspect]
     Route: 042
  5. OXALIPLATIN [Suspect]
     Route: 042
  6. 5-FU [Suspect]
     Route: 040

REACTIONS (33)
  - NEUTROPENIA [None]
  - THROMBOCYTOPENIA [None]
  - DEVICE RELATED INFECTION [None]
  - DECREASED APPETITE [None]
  - HYPOALBUMINAEMIA [None]
  - STOMATITIS [None]
  - ABDOMINAL PAIN [None]
  - DIARRHOEA [None]
  - SEPSIS [None]
  - BLOOD ALKALINE PHOSPHATASE ABNORMAL [None]
  - NAIL DISORDER [None]
  - CEREBRAL ISCHAEMIA [None]
  - VENOUS THROMBOSIS [None]
  - CONSTIPATION [None]
  - HYPERGLYCAEMIA [None]
  - TOXICITY TO VARIOUS AGENTS [None]
  - ANAEMIA [None]
  - ASPARTATE AMINOTRANSFERASE ABNORMAL [None]
  - EXFOLIATIVE RASH [None]
  - VOMITING [None]
  - NAIL INFECTION [None]
  - NAUSEA [None]
  - PERIPHERAL SENSORY NEUROPATHY [None]
  - PULMONARY FIBROSIS [None]
  - CARDIO-RESPIRATORY DISTRESS [None]
  - HYPOTENSION [None]
  - FATIGUE [None]
  - HYPOMAGNESAEMIA [None]
  - DERMATITIS ACNEIFORM [None]
  - HYPERSENSITIVITY [None]
  - ALANINE AMINOTRANSFERASE ABNORMAL [None]
  - PROTEINURIA [None]
  - HYPOKALAEMIA [None]
